FAERS Safety Report 5493840-1 (Version None)
Quarter: 2007Q4

REPORT INFORMATION
  Report Type: 
  Country: None (occurrence: None)
  Receive Date: 20071019
  Receipt Date: 20071010
  Transmission Date: 20080405
  Serious: Yes (Hospitalization)
  Sender: FDA-Public Use
  Company Number: 238157K07USA

PATIENT
  Age: 64 Year
  Sex: Female

DRUGS (11)
  1. REBIF [Suspect]
     Indication: MULTIPLE SCLEROSIS
     Dosage: 44 MCG, 3 IN 1 WEEKS, SUBCUTANEOUS
     Route: 058
     Dates: start: 20020603
  2. PREDNISONE [Suspect]
     Dosage: ORAL
     Route: 048
     Dates: end: 20070901
  3. ADVAIR (SERETIDE) [Concomitant]
  4. PROVENTIL [Concomitant]
  5. SPIRIVA [Concomitant]
  6. RESTORIL (TEMAEPAM) [Concomitant]
  7. CARTIA XT [Concomitant]
  8. TOPROL-XL [Concomitant]
  9. COUMADIN [Concomitant]
  10. WELLBUTRIN [Concomitant]
  11. AMBIEN CR [Concomitant]

REACTIONS (7)
  - BREAKTHROUGH PAIN [None]
  - CHRONIC OBSTRUCTIVE PULMONARY DISEASE [None]
  - CRANIAL NERVE DISORDER [None]
  - DYSKINESIA [None]
  - FACIAL PAIN [None]
  - PAIN IN JAW [None]
  - PSYCHOTIC DISORDER [None]
